FAERS Safety Report 4596783-0 (Version None)
Quarter: 2005Q1

REPORT INFORMATION
  Report Type: 
  Country: None (occurrence: None)
  Receive Date: 20050225
  Receipt Date: 20050217
  Transmission Date: 20050727
  Serious: Yes (Death)
  Sender: FDA-Public Use
  Company Number: 05H-163-0291212-00

PATIENT
  Sex: Male

DRUGS (1)
  1. DEMEROL [Suspect]
     Dosage: UNKNOWN
     Route: 065

REACTIONS (1)
  - DEATH [None]
